FAERS Safety Report 12749658 (Version 1)
Quarter: 2016Q3

REPORT INFORMATION
  Report Type: Spontaneous
  Country: US (occurrence: US)
  Receive Date: 20160915
  Receipt Date: 20160915
  Transmission Date: 20161109
  Serious: No
  Sender: FDA-Public Use
  Company Number: None

PATIENT
  Age: 61 Year
  Sex: Female

DRUGS (1)
  1. HYOSCYAMINE SL [Suspect]
     Active Substance: HYOSCYAMINE SULFATE
     Route: 048
     Dates: start: 20160906, end: 20160910

REACTIONS (4)
  - Hot flush [None]
  - Cold sweat [None]
  - Drug effect increased [None]
  - Product use issue [None]

NARRATIVE: CASE EVENT DATE: 20160908
